FAERS Safety Report 24991794 (Version 1)
Quarter: 2025Q1

REPORT INFORMATION
  Report Type: Spontaneous
  Country: BR (occurrence: BR)
  Receive Date: 20250220
  Receipt Date: 20250220
  Transmission Date: 20250409
  Serious: Yes (Congenital Anomaly, Other)
  Sender: VIIV
  Company Number: BR-VIIV HEALTHCARE-BR2025AMR020766

PATIENT

DRUGS (1)
  1. DOLUTEGRAVIR [Suspect]
     Active Substance: DOLUTEGRAVIR
     Indication: Antiretroviral therapy
     Route: 064

REACTIONS (4)
  - Heart disease congenital [Unknown]
  - Multiple congenital abnormalities [Unknown]
  - Nephropathy [Unknown]
  - Foetal exposure during pregnancy [Unknown]
